FAERS Safety Report 23641906 (Version 2)
Quarter: 2024Q2

REPORT INFORMATION
  Report Type: Spontaneous
  Country: FR (occurrence: FR)
  Receive Date: 20240318
  Receipt Date: 20240514
  Transmission Date: 20240716
  Serious: Yes (Hospitalization)
  Sender: FDA-Public Use
  Company Number: FR-Merck Healthcare KGaA-2024013750

PATIENT
  Sex: Female

DRUGS (1)
  1. LEVOTHYROXINE [Suspect]
     Active Substance: LEVOTHYROXINE\LEVOTHYROXINE SODIUM
     Indication: Product used for unknown indication
     Dosage: LEVOTHYROX 175 MCG

REACTIONS (3)
  - Bradycardia [Unknown]
  - Illness [Unknown]
  - Product quality issue [Unknown]
